FAERS Safety Report 18673704 (Version 1)
Quarter: 2020Q4

REPORT INFORMATION
  Report Type: Spontaneous
  Country: US (occurrence: US)
  Receive Date: 20201229
  Receipt Date: 20201229
  Transmission Date: 20210114
  Serious: Yes (Hospitalization, Other)
  Sender: FDA-Public Use
  Company Number: US-AMGEN-USASP2020208433

PATIENT
  Age: 18 Month
  Sex: Female

DRUGS (1)
  1. NEUPOGEN [Suspect]
     Active Substance: FILGRASTIM
     Indication: NEUTROPENIA
     Dosage: UNK
     Route: 065

REACTIONS (4)
  - Lymphadenopathy [Unknown]
  - Hepatosplenomegaly [Unknown]
  - Off label use [Unknown]
  - Acute lymphocytic leukaemia [Recovered/Resolved]
